FAERS Safety Report 5610637-X (Version None)
Quarter: 2008Q1

REPORT INFORMATION
  Report Type: 
  Country: None (occurrence: None)
  Receive Date: 20080201
  Receipt Date: 20080125
  Transmission Date: 20080703
  Serious: Yes (Hospitalization, Other)
  Sender: FDA-Public Use
  Company Number: CA-JNJFOC-20071205070

PATIENT
  Sex: Male
  Weight: 65 kg

DRUGS (6)
  1. REMICADE [Suspect]
     Indication: AMYLOIDOSIS
     Route: 042
  2. REMICADE [Suspect]
     Indication: ANKYLOSING SPONDYLITIS
     Dosage: 4 INFUSIONS ON UNKNOWN DATES
     Route: 042
  3. OXYCONTIN [Concomitant]
     Indication: PAIN
     Route: 048
  4. ADALAT [Concomitant]
     Route: 048
  5. COLCHICINE [Concomitant]
     Route: 048
  6. LOSEC I.V. [Concomitant]
     Route: 048

REACTIONS (5)
  - DEHYDRATION [None]
  - PALPITATIONS [None]
  - RENAL FAILURE ACUTE [None]
  - STRESS [None]
  - VENOUS PRESSURE JUGULAR INCREASED [None]
